FAERS Safety Report 25588285 (Version 2)
Quarter: 2025Q3

REPORT INFORMATION
  Report Type: Spontaneous
  Country: US (occurrence: US)
  Receive Date: 20250722
  Receipt Date: 20250817
  Transmission Date: 20251020
  Serious: Yes (Hospitalization)
  Sender: ROCHE
  Company Number: US-ROCHE-10000339387

PATIENT
  Sex: Male

DRUGS (1)
  1. XOLAIR [Suspect]
     Active Substance: OMALIZUMAB
     Indication: Asthma
     Dosage: INJECTS 225 MG SUBCUTANEOUSLY EVERY TWO WEEKS DIVIDED INTO 2 DOSES AND GIVEN AT 2 DIFFERENT SITES
     Route: 065

REACTIONS (1)
  - Pneumonia [Not Recovered/Not Resolved]
